FAERS Safety Report 20388732 (Version 2)
Quarter: 2022Q1

REPORT INFORMATION
  Report Type: Spontaneous
  Country: FR (occurrence: FR)
  Receive Date: 20220128
  Receipt Date: 20220217
  Transmission Date: 20220423
  Serious: Yes (Hospitalization)
  Sender: FDA-Public Use
  Company Number: FR-AFSSAPS-AVMP20220006

PATIENT
  Age: 35 Year
  Sex: Female

DRUGS (3)
  1. ZOLPIDEM [Suspect]
     Active Substance: ZOLPIDEM TARTRATE
     Indication: Product used for unknown indication
     Dosage: 1/2 BLISTER PER DAY
     Route: 048
     Dates: start: 2021
  2. LYRICA [Suspect]
     Active Substance: PREGABALIN
     Indication: Product used for unknown indication
     Dosage: 900-1200 MG PER DOSE SINCE //11/2022ATTEMPTED SUICIDE 3 STRIPS IN A SINGLE DOSE
     Route: 048
     Dates: start: 202111
  3. BROMAZEPAM [Suspect]
     Active Substance: BROMAZEPAM
     Indication: Product used for unknown indication
     Dosage: 1/2 BOTTLE PER DAY
     Route: 048
     Dates: start: 2021

REACTIONS (4)
  - Anxiety [Recovered/Resolved]
  - Suicidal ideation [Recovering/Resolving]
  - Suicide attempt [Recovering/Resolving]
  - Intentional product misuse [Unknown]

NARRATIVE: CASE EVENT DATE: 20211101
